FAERS Safety Report 18402330 (Version 1)
Quarter: 2020Q4

REPORT INFORMATION
  Report Type: Other
  Country: CA (occurrence: CA)
  Receive Date: 20201020
  Receipt Date: 20201020
  Transmission Date: 20210114
  Serious: Yes (Other)
  Sender: FDA-Public Use
  Company Number: CA-CELLTRION INC.-2020CA028933

PATIENT

DRUGS (12)
  1. ALENDRONATE SODIUM. [Concomitant]
     Active Substance: ALENDRONATE SODIUM
  2. KENALOG [Concomitant]
     Active Substance: TRIAMCINOLONE ACETONIDE
     Route: 030
  3. PREDNISONE. [Concomitant]
     Active Substance: PREDNISONE
     Dosage: 50 MILLIGRAM
     Route: 065
  4. DOXYCYCLINE. [Concomitant]
     Active Substance: DOXYCYCLINE
  5. METHOTREXATE. [Concomitant]
     Active Substance: METHOTREXATE
  6. RITUXIMAB (UNKNOWN) [Suspect]
     Active Substance: RITUXIMAB
     Indication: PEMPHIGOID
     Route: 042
  7. RITUXIMAB (UNKNOWN) [Suspect]
     Active Substance: RITUXIMAB
     Indication: OCULAR PEMPHIGOID
  8. CALCIUM [Concomitant]
     Active Substance: CALCIUM
  9. AZATHIOPRINE. [Concomitant]
     Active Substance: AZATHIOPRINE
     Dosage: 100 MILLIGRAM, 2 EVERY 1 DAY
     Route: 065
  10. DAPSONE. [Concomitant]
     Active Substance: DAPSONE
     Indication: OCULAR PEMPHIGOID
  11. ELTROXIN [Concomitant]
     Active Substance: LEVOTHYROXINE
  12. ROSUVASTATIN. [Concomitant]
     Active Substance: ROSUVASTATIN

REACTIONS (5)
  - Off label use [Not Recovered/Not Resolved]
  - Corneal perforation [Not Recovered/Not Resolved]
  - Eye infection [Not Recovered/Not Resolved]
  - Dry skin [Not Recovered/Not Resolved]
  - Intentional product use issue [Not Recovered/Not Resolved]
